FAERS Safety Report 9343630 (Version 1)
Quarter: 2013Q2

REPORT INFORMATION
  Report Type: Spontaneous
  Country: GB (occurrence: None)
  Receive Date: 20130610
  Receipt Date: 20130610
  Transmission Date: 20140414
  Serious: Yes (Other)
  Sender: FDA-Public Use
  Company Number: AUR-APL-2013004620

PATIENT
  Age: 5 Year
  Sex: Female

DRUGS (2)
  1. LEVETIRACETAM [Suspect]
     Indication: LENNOX-GASTAUT SYNDROME
     Dosage: (300,TOTAL)
  2. SODIUM VALPROATE (VALPROATE SODIUM) [Concomitant]

REACTIONS (2)
  - Epilepsy [None]
  - Drug ineffective [None]
